FAERS Safety Report 23723835 (Version 2)
Quarter: 2024Q2

REPORT INFORMATION
  Report Type: Spontaneous
  Country: IN (occurrence: IN)
  Receive Date: 20240409
  Receipt Date: 20240514
  Transmission Date: 20240716
  Serious: Yes (Other)
  Sender: FDA-Public Use
  Company Number: IN-SUN PHARMACEUTICAL INDUSTRIES LTD-2024R1-440197

PATIENT
  Age: 63 Year
  Sex: Male

DRUGS (2)
  1. VALPROATE [Suspect]
     Active Substance: VALPROIC ACID
     Indication: Bipolar disorder
     Route: 065
  2. LITHIUM [Suspect]
     Active Substance: LITHIUM
     Indication: Bipolar disorder
     Route: 065

REACTIONS (6)
  - Essential tremor [Unknown]
  - Cerebellar atrophy [Unknown]
  - Chronic kidney disease [Unknown]
  - Drug resistance [Unknown]
  - Hyperammonaemia [Unknown]
  - Hypertension [Unknown]
